FAERS Safety Report 9132588 (Version 3)
Quarter: 2013Q1

REPORT INFORMATION
  Report Type: Spontaneous
  Country: US (occurrence: US)
  Receive Date: 20130301
  Receipt Date: 20130327
  Transmission Date: 20140127
  Serious: Yes (Disabling, Other)
  Sender: FDA-Public Use
  Company Number: US-CELGENEUS-163-21880-13020824

PATIENT
  Sex: Female

DRUGS (5)
  1. REVLIMID [Suspect]
     Indication: PLASMA CELL MYELOMA
     Dosage: 25 MILLIGRAM
     Route: 048
     Dates: start: 20130114
  2. DEXAMETHASONE [Concomitant]
     Indication: PRODUCT USED FOR UNKNOWN INDICATION
     Dosage: 40 MILLIGRAM
     Route: 065
     Dates: start: 20130114
  3. BONE INFUSION [Concomitant]
     Indication: PRODUCT USED FOR UNKNOWN INDICATION
     Route: 041
  4. MEDICATION [Concomitant]
     Indication: DEPRESSION
     Route: 065
  5. MOTRIN [Concomitant]
     Indication: PAIN
     Route: 065

REACTIONS (10)
  - Osteolysis [Recovering/Resolving]
  - Arthralgia [Unknown]
  - Vaginal haemorrhage [Unknown]
  - Stomatitis [Unknown]
  - Paraesthesia [Unknown]
  - Asthenia [Recovering/Resolving]
  - Fatigue [Recovered/Resolved]
  - Depression [Recovering/Resolving]
  - Arthralgia [Recovering/Resolving]
  - Pelvic pain [Recovering/Resolving]
